FAERS Safety Report 7622749-X (Version None)
Quarter: 2011Q3

REPORT INFORMATION
  Report Type: 
  Country: None (occurrence: None)
  Receive Date: 20110719
  Receipt Date: 20110719
  Transmission Date: 20111222
  Serious: Yes (Hospitalization)
  Sender: FDA-Public Use
  Company Number: None

PATIENT
  Age: 65 Year
  Sex: Female
  Weight: 62.1428 kg

DRUGS (2)
  1. SIMVASTATIN [Suspect]
     Indication: HYPERCHOLESTEROLAEMIA
     Dosage: 80MG 1 DAY ORAL
     Route: 048
     Dates: start: 20110228, end: 20110528
  2. SIMVASTATIN [Suspect]
     Indication: CEREBROVASCULAR ACCIDENT
     Dosage: 80MG 1 DAY ORAL
     Route: 048
     Dates: start: 20110228, end: 20110528

REACTIONS (2)
  - RHABDOMYOLYSIS [None]
  - MUSCLE ATROPHY [None]
